FAERS Safety Report 14958341 (Version 1)
Quarter: 2018Q2

REPORT INFORMATION
  Report Type: Spontaneous
  Country: ES (occurrence: ES)
  Receive Date: 20180531
  Receipt Date: 20180531
  Transmission Date: 20180711
  Serious: Yes (Other)
  Sender: FDA-Public Use
  Company Number: ES-AUROBINDO-AUR-APL-2018-027973

PATIENT
  Age: 31 Year
  Sex: Male

DRUGS (2)
  1. LEVOFLOXACIN. [Suspect]
     Active Substance: LEVOFLOXACIN
     Indication: BACTERIAL PROSTATITIS
     Dosage: UNK, 2-3 WEEKS ()
     Route: 065
  2. LEVOFLOXACIN. [Suspect]
     Active Substance: LEVOFLOXACIN
     Indication: PROSTATE INFECTION
     Dosage: UNK ()
     Route: 065
     Dates: start: 201802

REACTIONS (12)
  - Aggression [Recovered/Resolved]
  - Anxiety [Recovered/Resolved]
  - Arthralgia [Unknown]
  - Muscle rigidity [Unknown]
  - Drug ineffective [Unknown]
  - Myalgia [Not Recovered/Not Resolved]
  - Inflammation [Unknown]
  - Anger [Recovered/Resolved]
  - Arthritis [Not Recovered/Not Resolved]
  - Dermatitis [Unknown]
  - Musculoskeletal stiffness [Not Recovered/Not Resolved]
  - Suicidal ideation [Recovered/Resolved]

NARRATIVE: CASE EVENT DATE: 2018
